FAERS Safety Report 8017511-2 (Version None)
Quarter: 2011Q4

REPORT INFORMATION
  Report Type: 
  Country: None (occurrence: None)
  Receive Date: 20111228
  Receipt Date: 20111228
  Transmission Date: 20120403
  Serious: No
  Sender: FDA-Public Use
  Company Number: None

PATIENT
  Age: 60 Year
  Sex: Female

DRUGS (1)
  1. CREST W/ FLUORIDE [Suspect]
     Dosage: 2X DAILY

REACTIONS (1)
  - ORAL MUCOSAL EXFOLIATION [None]
